FAERS Safety Report 15580201 (Version 1)
Quarter: 2018Q4

REPORT INFORMATION
  Report Type: Spontaneous
  Country: US (occurrence: US)
  Receive Date: 20181102
  Receipt Date: 20181102
  Transmission Date: 20190205
  Serious: No
  Sender: FDA-Public Use
  Company Number: US-BAXTER-2018BAX027055

PATIENT

DRUGS (4)
  1. 0.9% SODIUM CHLORIDE INJECTION, USP IN MINI-BAG PLUS CONTAINER [Suspect]
     Active Substance: SODIUM CHLORIDE
     Indication: CATHETER MANAGEMENT
     Dosage: VIA PICC LINE
     Route: 042
     Dates: start: 20181004, end: 20181004
  2. DAPTOMYCIN. [Suspect]
     Active Substance: DAPTOMYCIN
     Indication: PRODUCT USED FOR UNKNOWN INDICATION
     Dosage: VIA PICC LINE
     Route: 042
     Dates: start: 20181004, end: 20181004
  3. DAPTOMYCIN. [Suspect]
     Active Substance: DAPTOMYCIN
     Dosage: VIA PICC LINE
     Route: 042
     Dates: start: 20181004, end: 20181004
  4. 0.9% SODIUM CHLORIDE INJECTION, USP IN MINI-BAG PLUS CONTAINER [Suspect]
     Active Substance: SODIUM CHLORIDE
     Indication: MEDICATION DILUTION
     Dosage: FOR PICC LINE FLUSHING
     Route: 042
     Dates: start: 20181004, end: 20181004

REACTIONS (3)
  - Malaise [Recovering/Resolving]
  - Flushing [Recovering/Resolving]
  - Chest pain [Recovering/Resolving]

NARRATIVE: CASE EVENT DATE: 20181004
